FAERS Safety Report 6867990-9 (Version None)
Quarter: 2010Q3

REPORT INFORMATION
  Report Type: 
  Country: None (occurrence: None)
  Receive Date: 20100722
  Receipt Date: 20080509
  Transmission Date: 20110219
  Serious: No
  Sender: FDA-Public Use
  Company Number: US-PFIZER INC-2008041202

PATIENT
  Sex: Female
  Weight: 70.8 kg

DRUGS (5)
  1. CHANTIX [Suspect]
     Indication: SMOKING CESSATION THERAPY
     Dates: start: 20080501, end: 20080509
  2. PAXIL [Concomitant]
  3. TRAZODONE [Concomitant]
  4. KLONOPIN [Concomitant]
  5. TRILEPTAL [Concomitant]

REACTIONS (5)
  - DIARRHOEA [None]
  - FATIGUE [None]
  - HEADACHE [None]
  - INSOMNIA [None]
  - NAUSEA [None]
